FAERS Safety Report 8995647 (Version 1)
Quarter: 2013Q1

REPORT INFORMATION
  Report Type: Spontaneous
  Country: US (occurrence: US)
  Receive Date: 20130103
  Receipt Date: 20130103
  Transmission Date: 20140127
  Serious: No
  Sender: FDA-Public Use
  Company Number: US-ABBOTT-12P-163-0889411-00

PATIENT
  Sex: Female
  Weight: 45.4 kg

DRUGS (2)
  1. SYNTHROID [Suspect]
     Indication: THYROIDECTOMY
     Dates: start: 2011
  2. SYNTHROID [Suspect]
     Dosage: EVERY 4 TO 6 DAYS

REACTIONS (3)
  - Sensation of heaviness [Recovered/Resolved]
  - Sleep disorder [Not Recovered/Not Resolved]
  - Palpitations [Not Recovered/Not Resolved]
